FAERS Safety Report 6336652-9 (Version None)
Quarter: 2009Q3

REPORT INFORMATION
  Report Type: 
  Country: None (occurrence: None)
  Receive Date: 20090831
  Receipt Date: 20090831
  Transmission Date: 20100115
  Serious: No
  Sender: FDA-Public Use
  Company Number: None

PATIENT
  Sex: Male
  Weight: 107.0489 kg

DRUGS (2)
  1. VOLTAREN [Suspect]
     Indication: OSTEOARTHRITIS
     Dosage: 4G 4 X DAILY TOP
     Route: 048
     Dates: start: 20090818, end: 20090822
  2. MEN-S ONE-A-DAY MULTIVITAMIN [Concomitant]

REACTIONS (1)
  - SKIN EXFOLIATION [None]
